FAERS Safety Report 18446210 (Version 1)
Quarter: 2020Q4

REPORT INFORMATION
  Report Type: Report from Study
  Country: US (occurrence: US)
  Receive Date: 20201030
  Receipt Date: 20201030
  Transmission Date: 20210114
  Serious: Yes (Death)
  Sender: FDA-Public Use
  Company Number: US-VIFOR (INTERNATIONAL) INC.-VIT-2020-10711

PATIENT
  Sex: Female

DRUGS (1)
  1. VELPHORO [Suspect]
     Active Substance: SUCROFERRIC OXYHYDROXIDE
     Indication: BLOOD PHOSPHORUS
     Route: 048
     Dates: start: 20191025, end: 20200610

REACTIONS (1)
  - Death [Fatal]

NARRATIVE: CASE EVENT DATE: 20200610
